FAERS Safety Report 5867450-8 (Version None)
Quarter: 2008Q3

REPORT INFORMATION
  Report Type: 
  Country: None (occurrence: None)
  Receive Date: 20080902
  Receipt Date: 20080902
  Transmission Date: 20090109
  Serious: Yes (Hospitalization)
  Sender: FDA-Public Use
  Company Number: PHEH1996US09332

PATIENT
  Sex: Male
  Weight: 109 kg

DRUGS (4)
  1. NEORAL [Suspect]
     Route: 048
     Dates: start: 19950630
  2. PREDNISONE TAB [Concomitant]
  3. SEPTRA [Concomitant]
  4. ACETAMINOPHEN [Concomitant]

REACTIONS (8)
  - CHILLS [None]
  - HEADACHE [None]
  - HEPATIC ENZYME INCREASED [None]
  - HEPATIC INFARCTION [None]
  - INFECTION [None]
  - LETHARGY [None]
  - NIGHT SWEATS [None]
  - PYREXIA [None]
